FAERS Safety Report 6724861-6 (Version None)
Quarter: 2010Q2

REPORT INFORMATION
  Report Type: 
  Country: None (occurrence: None)
  Receive Date: 20100513
  Receipt Date: 20100513
  Transmission Date: 20101027
  Serious: Yes (Hospitalization, Disabling)
  Sender: FDA-Public Use
  Company Number: None

PATIENT
  Sex: Female
  Weight: 58.0604 kg

DRUGS (4)
  1. FOSAMAX [Suspect]
     Indication: OSTEOPOROSIS
     Dosage: 70 MM. WEEKLY
     Dates: start: 19990101, end: 20100301
  2. SOTALOL HCL [Concomitant]
  3. TUMS [Concomitant]
  4. PREVACID OTC [Concomitant]

REACTIONS (2)
  - BONE DISORDER [None]
  - BONE PAIN [None]
